FAERS Safety Report 7010022-2 (Version None)
Quarter: 2010Q3

REPORT INFORMATION
  Report Type: 
  Country: None (occurrence: None)
  Receive Date: 20100923
  Receipt Date: 20100916
  Transmission Date: 20110219
  Serious: Yes (Death, Life-Threatening, Other)
  Sender: FDA-Public Use
  Company Number: GB-AMGEN-KDC431085

PATIENT
  Sex: Male

DRUGS (12)
  1. VECTIBIX [Suspect]
     Indication: GASTROOESOPHAGEAL CANCER
     Dates: start: 20100319
  2. EPIRUBICIN [Suspect]
     Dates: start: 20100319
  3. OXALIPLATIN [Suspect]
     Dates: start: 20100319
  4. CAPECITABINE [Suspect]
     Dates: start: 20100319
  5. ATENOLOL [Concomitant]
     Route: 048
     Dates: start: 19950101
  6. ASPIRIN [Concomitant]
     Route: 048
     Dates: start: 19950101
  7. METFORMIN [Concomitant]
     Route: 048
     Dates: start: 20040101
  8. PERINDOPRIL [Concomitant]
     Route: 048
     Dates: start: 19950101
  9. ATORVASTATIN CALCIUM [Concomitant]
     Route: 048
     Dates: start: 19950101
  10. ZOMETA [Concomitant]
     Route: 048
     Dates: start: 20100512
  11. DERMOL SOL [Concomitant]
     Route: 061
     Dates: start: 20100705
  12. ANUSOL [Concomitant]
     Route: 061
     Dates: start: 20100705

REACTIONS (3)
  - DEATH [None]
  - DISEASE PROGRESSION [None]
  - PULMONARY EMBOLISM [None]
